FAERS Safety Report 8218785-5 (Version None)
Quarter: 2012Q1

REPORT INFORMATION
  Report Type: 
  Country: None (occurrence: None)
  Receive Date: 20120319
  Receipt Date: 20120312
  Transmission Date: 20120608
  Serious: Yes (Other)
  Sender: FDA-Public Use
  Company Number: PHHY2012NL010764

PATIENT
  Sex: Male

DRUGS (3)
  1. ZOMETA [Suspect]
     Indication: PROSTATE CANCER METASTATIC
     Dosage: 4 MG/5 ML ONCE IN 28 DAYS
     Dates: start: 20111111
  2. ZOMETA [Suspect]
     Dosage: 4 MG/5 ML ONCE IN 28 DAYS
     Dates: start: 20120109
  3. ZOMETA [Suspect]
     Dosage: 4 MG,/100 ML ONCE IN 28 DAYS
     Route: 042
     Dates: start: 20120210, end: 20120210

REACTIONS (4)
  - TERMINAL STATE [None]
  - COUGH [None]
  - GAIT DISTURBANCE [None]
  - VISUAL ACUITY REDUCED [None]
